FAERS Safety Report 10588455 (Version 1)
Quarter: 2014Q4

REPORT INFORMATION
  Report Type: Spontaneous
  Country: ES (occurrence: ES)
  Receive Date: 20141117
  Receipt Date: 20141117
  Transmission Date: 20150529
  Serious: Yes (Hospitalization)
  Sender: FDA-Public Use
  Company Number: ES-SA-2014SA153753

PATIENT
  Age: 89 Year
  Sex: Male

DRUGS (10)
  1. CLEXANE [Suspect]
     Active Substance: ENOXAPARIN SODIUM
     Indication: ATRIAL FIBRILLATION
     Dosage: FAC
     Route: 058
     Dates: start: 20140118, end: 20140121
  2. SIMVASTATIN. [Concomitant]
     Active Substance: SIMVASTATIN
     Indication: DYSLIPIDAEMIA
     Dosage: 0-0-1
     Route: 048
     Dates: start: 2003
  3. ESTOMIL [Concomitant]
  4. OMEPRAZOLE. [Concomitant]
     Active Substance: OMEPRAZOLE
     Indication: PROPHYLAXIS AGAINST GASTROINTESTINAL ULCER
     Dosage: 1 CP
     Route: 048
     Dates: start: 20140118
  5. ALLOPURINOL. [Concomitant]
     Active Substance: ALLOPURINOL
     Indication: HYPERURICAEMIA
     Dosage: 1 CP
     Route: 048
     Dates: start: 2003
  6. AMIODARONE [Concomitant]
     Active Substance: AMIODARONE
     Indication: ATRIAL FIBRILLATION
     Dosage: 1-0-0
     Route: 048
     Dates: start: 2009
  7. PARACETAMOL [Concomitant]
     Active Substance: ACETAMINOPHEN
     Indication: PAIN
     Dosage: 1GR/8H
     Route: 048
     Dates: start: 20140118
  8. SINTROM [Concomitant]
     Active Substance: ACENOCOUMAROL
  9. OLMESARTAN [Concomitant]
     Active Substance: OLMESARTAN
  10. COMBODART [Concomitant]
     Active Substance: DUTASTERIDE\TAMSULOSIN

REACTIONS (6)
  - Renal failure [Unknown]
  - Aphasia [Unknown]
  - Rhabdomyolysis [Unknown]
  - Haemoglobin decreased [Unknown]
  - Muscle haemorrhage [Recovering/Resolving]
  - Shock haemorrhagic [Recovered/Resolved]

NARRATIVE: CASE EVENT DATE: 20140121
